FAERS Safety Report 10404308 (Version 1)
Quarter: 2014Q1

REPORT INFORMATION
  Report Type: Spontaneous
  Country: US (occurrence: None)
  Receive Date: 20131226
  Receipt Date: 20131226
  Transmission Date: 20141002
  Serious: Yes (Hospitalization, Other)
  Sender: FDA-Public Use
  Company Number: PHEH2012US005833

PATIENT
  Age: 60 Year
  Sex: Female
  Weight: 71.7 kg

DRUGS (6)
  1. AFINITOR (RAD) UNKNOWN [Suspect]
     Indication: BREAST CANCER
     Route: 048
     Dates: start: 20120108, end: 20120119
  2. AFINITOR (RAD) UNKNOWN [Suspect]
     Indication: RENAL CANCER
     Route: 048
     Dates: start: 20120108, end: 20120119
  3. VANICREAM(MACROGOL, PROPYLENE GLYCOL, SIMETICONE, SORBIC ACID, SORBITOL, WHITE SOFT PARAFFIN) [Concomitant]
  4. AROMASIN (EXEMESTANE) [Concomitant]
  5. OMEPRAZOLE [Concomitant]
  6. DILAUDID (HYDROMORPHONE HYDROCHLORIDE) [Concomitant]

REACTIONS (7)
  - Neoplasm [None]
  - Dehydration [None]
  - Neutropenia [None]
  - Nausea [None]
  - Diarrhoea [None]
  - Drug ineffective [None]
  - Malignant neoplasm progression [None]
